FAERS Safety Report 9459690 (Version 1)
Quarter: 2013Q3

REPORT INFORMATION
  Report Type: Spontaneous
  Country: CN (occurrence: CN)
  Receive Date: 20130815
  Receipt Date: 20130815
  Transmission Date: 20140515
  Serious: Yes (Death)
  Sender: FDA-Public Use
  Company Number: CN-PERRIGO-13CN008209

PATIENT
  Age: 58 Year
  Sex: Male

DRUGS (6)
  1. GENTAMICIN SULFATE RX 0.1% 1A5 [Suspect]
     Indication: ANTIBIOTIC PROPHYLAXIS
     Dosage: UNK, UNK
     Route: 065
     Dates: start: 200611
  2. CLOXACILLIN [Suspect]
     Indication: PERITONITIS
     Route: 065
     Dates: start: 200309
  3. AMIKACIN [Concomitant]
     Indication: MYCOBACTERIUM ABSCESSUS INFECTION
     Dosage: UNK, UNK
     Route: 033
     Dates: start: 200710, end: 200711
  4. AMIKACIN [Concomitant]
     Indication: MYCOBACTERIAL PERITONITIS
  5. CLARITHROMYCIN [Concomitant]
     Indication: MYCOBACTERIUM ABSCESSUS INFECTION
     Dosage: UNK, UNK
     Route: 048
     Dates: start: 200710, end: 200801
  6. CLARITHROMYCIN [Concomitant]
     Indication: MYCOBACTERIAL PERITONITIS

REACTIONS (2)
  - Mycobacterial peritonitis [Fatal]
  - Mycobacterium abscessus infection [Fatal]
